FAERS Safety Report 20257335 (Version 7)
Quarter: 2022Q2

REPORT INFORMATION
  Report Type: Report from Study
  Country: CA (occurrence: CA)
  Receive Date: 20211230
  Receipt Date: 20220418
  Transmission Date: 20220721
  Serious: Yes (Hospitalization, Other)
  Sender: FDA-Public Use
  Company Number: CA-HLS-202003469

PATIENT
  Age: 41 Year
  Sex: Male

DRUGS (26)
  1. CLOZARIL [Suspect]
     Active Substance: CLOZAPINE
     Indication: Bipolar I disorder
     Route: 048
     Dates: start: 20010124
  2. CLOZARIL [Suspect]
     Active Substance: CLOZAPINE
     Indication: Schizoaffective disorder bipolar type
     Route: 048
     Dates: start: 20010124
  3. CLOZARIL [Suspect]
     Active Substance: CLOZAPINE
     Indication: Bipolar I disorder
     Dosage: 100 MG IN THE MORNING , 175 MG AT DINNER, 375 MG  AT BEDTIME
     Route: 048
     Dates: start: 20010124
  4. CLOZARIL [Suspect]
     Active Substance: CLOZAPINE
     Indication: Schizoaffective disorder bipolar type
     Dosage: 100 MG IN THE MORNING , 175 MG AT DINNER, 375 MG  AT BEDTIME
     Route: 048
     Dates: start: 20010124
  5. CLOZARIL [Suspect]
     Active Substance: CLOZAPINE
     Indication: Bipolar I disorder
     Dosage: BEFOREHAND CLOZARIL 200 MG AT BEDTIME, .INCREASED IN SUMMER 2018 (INSTEAD OF 200 MG HS).
     Route: 048
     Dates: start: 2002
  6. CLOZARIL [Suspect]
     Active Substance: CLOZAPINE
     Indication: Schizoaffective disorder bipolar type
     Dosage: BEFOREHAND CLOZARIL 200 MG AT BEDTIME, .INCREASED IN SUMMER 2018 (INSTEAD OF 200 MG HS).
     Route: 048
     Dates: start: 2002
  7. CLOZARIL [Suspect]
     Active Substance: CLOZAPINE
     Indication: Bipolar I disorder
     Dosage: 200 MG AT BED TIME
     Route: 048
     Dates: start: 2005
  8. CLOZARIL [Suspect]
     Active Substance: CLOZAPINE
     Indication: Schizoaffective disorder bipolar type
     Dosage: 200 MG AT BED TIME
     Route: 048
     Dates: start: 2005
  9. LAMOTRIGINE [Concomitant]
     Active Substance: LAMOTRIGINE
     Indication: Bipolar I disorder
     Dosage: 100 MG AT BED TIME
     Route: 048
     Dates: start: 2005
  10. LAMOTRIGINE [Concomitant]
     Active Substance: LAMOTRIGINE
     Indication: Bipolar I disorder
     Dosage: CURRENTLY ON GENERIC SINCE 7 NOVEMBRE 2018,
     Route: 065
     Dates: start: 201809
  11. LORAZEPAM [Concomitant]
     Active Substance: LORAZEPAM
     Indication: Bipolar I disorder
     Dosage: 0.5 MG AT BED TIME
     Route: 048
     Dates: start: 2005
  12. BENZTROPINE [Concomitant]
     Active Substance: BENZTROPINE
     Indication: Anxiety
     Dosage: AS NEEDED
     Route: 065
  13. BENZTROPINE [Concomitant]
     Active Substance: BENZTROPINE
     Indication: Bipolar I disorder
     Dosage: AS NEEDED
     Route: 065
  14. BENZTROPINE [Concomitant]
     Active Substance: BENZTROPINE
     Indication: Anxiety
     Dosage: 1 TABLET  AS NEEDED EVERY 2 MONTHS
     Route: 048
     Dates: end: 20210323
  15. BENZTROPINE [Concomitant]
     Active Substance: BENZTROPINE
     Indication: Bipolar I disorder
     Dosage: 1 TABLET  AS NEEDED EVERY 2 MONTHS
     Route: 048
     Dates: end: 20210323
  16. BENZTROPINE [Concomitant]
     Active Substance: BENZTROPINE
     Indication: Anxiety
     Dosage: 1/2 TO 1 AT BED TIME
     Route: 048
     Dates: start: 2005
  17. BENZTROPINE [Concomitant]
     Active Substance: BENZTROPINE
     Indication: Bipolar I disorder
     Dosage: 1/2 TO 1 AT BED TIME
     Route: 048
     Dates: start: 2005
  18. BENZTROPINE [Concomitant]
     Active Substance: BENZTROPINE
     Indication: Anxiety
     Route: 065
     Dates: start: 20201117
  19. BENZTROPINE [Concomitant]
     Active Substance: BENZTROPINE
     Indication: Bipolar I disorder
     Route: 065
     Dates: start: 20201117
  20. QUETIAPINE [Concomitant]
     Active Substance: QUETIAPINE
     Indication: Product used for unknown indication
     Dosage: INSTEAD OF 200 MG 1 CO AT BEDTIME 21H30 SINCE SEPT 2018 (MONTFORT),INSTEAD OF 175 MG SINCE DECEMBER
     Route: 065
     Dates: start: 202203
  21. QUETIAPINE [Concomitant]
     Active Substance: QUETIAPINE
     Indication: Product used for unknown indication
     Dosage: 1 TABLET AT BED TIME
     Route: 065
  22. QUETIAPINE [Concomitant]
     Active Substance: QUETIAPINE
     Indication: Product used for unknown indication
     Route: 065
  23. QUETIAPINE [Concomitant]
     Active Substance: QUETIAPINE
     Indication: Product used for unknown indication
     Dosage: AS NEEDED FOR A LONG TIME.
     Route: 065
  24. ROSUVASTATIN [Concomitant]
     Active Substance: ROSUVASTATIN
     Indication: Product used for unknown indication
     Dosage: AT BEDTIME
     Route: 065
  25. PANTOPRAZOLE [Concomitant]
     Active Substance: PANTOPRAZOLE
     Indication: Product used for unknown indication
     Dosage: 2 TABLET AT BEDTIME
     Route: 065
     Dates: start: 20201117
  26. PANTOPRAZOLE [Concomitant]
     Active Substance: PANTOPRAZOLE
     Indication: Product used for unknown indication
     Dosage: IN THE MORNING
     Route: 065

REACTIONS (5)
  - Rebound psychosis [Unknown]
  - Ejaculation delayed [Unknown]
  - Lymphopenia [Unknown]
  - White blood cell count decreased [Recovered/Resolved]
  - Retrograde ejaculation [Unknown]

NARRATIVE: CASE EVENT DATE: 20130101
